FAERS Safety Report 6759230-6 (Version None)
Quarter: 2010Q2

REPORT INFORMATION
  Report Type: 
  Country: None (occurrence: None)
  Receive Date: 20100607
  Receipt Date: 20100525
  Transmission Date: 20101027
  Serious: Yes (Other)
  Sender: FDA-Public Use
  Company Number: DE-PFIZER INC-2010065267

PATIENT
  Sex: Female

DRUGS (1)
  1. NEURONTIN [Suspect]
     Route: 048

REACTIONS (8)
  - CARDIAC DISCOMFORT [None]
  - CONSTIPATION [None]
  - DRUG INEFFECTIVE [None]
  - DYSPNOEA [None]
  - FLATULENCE [None]
  - INSOMNIA [None]
  - PAIN [None]
  - TREMOR [None]
